FAERS Safety Report 13031869 (Version 7)
Quarter: 2017Q1

REPORT INFORMATION
  Report Type: Spontaneous
  Country: US (occurrence: US)
  Receive Date: 20161215
  Receipt Date: 20170328
  Transmission Date: 20170428
  Serious: Yes (Other)
  Sender: FDA-Public Use
  Company Number: US-PFIZER INC-2016571397

PATIENT
  Age: 57 Year
  Sex: Male
  Weight: 104.31 kg

DRUGS (4)
  1. SUTENT [Suspect]
     Active Substance: SUNITINIB MALATE
     Indication: METASTATIC RENAL CELL CARCINOMA
     Dosage: 50 MG, CYCLIC [28 DAYS ON/14 DAYS OFF]
     Dates: start: 201209, end: 20170312
  2. FLOMAX [Concomitant]
     Active Substance: TAMSULOSIN HYDROCHLORIDE
     Dosage: UNK
  3. LEVOTHYROXINE. [Concomitant]
     Active Substance: LEVOTHYROXINE
     Dosage: UNK
  4. XANAX [Concomitant]
     Active Substance: ALPRAZOLAM
     Dosage: UNK

REACTIONS (35)
  - Peripheral swelling [Recovering/Resolving]
  - Tremor [Unknown]
  - Nasopharyngitis [Unknown]
  - Ageusia [Recovering/Resolving]
  - Pain [Unknown]
  - Tendon pain [Unknown]
  - Dyspnoea [Unknown]
  - Gout [Unknown]
  - Lower respiratory tract infection [Unknown]
  - Diarrhoea [Unknown]
  - Blood uric acid increased [Recovering/Resolving]
  - Hyperhidrosis [Unknown]
  - Arthralgia [Unknown]
  - Pruritus [Unknown]
  - Thyroid disorder [Unknown]
  - Muscular weakness [Unknown]
  - Hypersensitivity [Unknown]
  - Dyspepsia [Unknown]
  - Joint swelling [Unknown]
  - Fatigue [Recovering/Resolving]
  - Blood urine present [Unknown]
  - Constipation [Unknown]
  - Neoplasm progression [Unknown]
  - Gastrooesophageal reflux disease [Unknown]
  - Cough [Unknown]
  - Visual impairment [Unknown]
  - Memory impairment [Unknown]
  - Feeling abnormal [Unknown]
  - Dry skin [Unknown]
  - Nasal congestion [Unknown]
  - Respiratory tract congestion [Unknown]
  - Sinus disorder [Unknown]
  - Arthralgia [Recovering/Resolving]
  - Tendonitis [Unknown]
  - Dysgeusia [Unknown]
